FAERS Safety Report 16037382 (Version 1)
Quarter: 2019Q1

REPORT INFORMATION
  Report Type: Spontaneous
  Country: US (occurrence: US)
  Receive Date: 20190305
  Receipt Date: 20190305
  Transmission Date: 20190418
  Serious: No
  Sender: FDA-Public Use
  Company Number: US-IMPAX LABORATORIES, LLC-2018-IPXL-03593

PATIENT
  Age: 70 Year
  Sex: Male

DRUGS (2)
  1. STALEVO                            /01530202/ [Concomitant]
     Active Substance: LEVOCETIRIZINE DIHYDROCHLORIDE
     Indication: PARKINSON^S DISEASE
     Dosage: UNK, ONE CAPSULE, FOUR TIMES A DAY
     Route: 048
  2. RYTARY [Suspect]
     Active Substance: CARBIDOPA\LEVODOPA
     Indication: PARKINSON^S DISEASE
     Dosage: 23.75/95 MG, ONE CAPSULE, FOUR TIMES A DAY
     Route: 048
     Dates: start: 20181015, end: 20181017

REACTIONS (3)
  - Hypersomnia [Recovered/Resolved]
  - Dizziness [Recovered/Resolved]
  - Confusional state [Recovered/Resolved]

NARRATIVE: CASE EVENT DATE: 20181015
